FAERS Safety Report 10762095 (Version 1)
Quarter: 2015Q1

REPORT INFORMATION
  Report Type: Spontaneous
  Country: FR (occurrence: FR)
  Receive Date: 20150204
  Receipt Date: 20150204
  Transmission Date: 20150721
  Serious: Yes (Hospitalization)
  Sender: FDA-Public Use
  Company Number: FR-009507513-1501FRA012202

PATIENT
  Age: 65 Year
  Sex: Female

DRUGS (12)
  1. TEMERIT [Suspect]
     Active Substance: NEBIVOLOL
     Indication: CARDIAC FAILURE
     Dosage: 0.5 DF, QAM
     Route: 048
  2. PROZAC [Suspect]
     Active Substance: FLUOXETINE HYDROCHLORIDE
     Dosage: 1 DF, QAM
     Route: 048
  3. ALDACTONE [Suspect]
     Active Substance: SPIRONOLACTONE
     Dosage: 1 DF, QAM
     Route: 048
  4. IXPRIM (ACETAMINOPHEN (+) TRAMADOL HYDROCHLORIDE) [Suspect]
     Active Substance: ACETAMINOPHEN\TRAMADOL
     Dosage: UNK, PRN
     Route: 048
  5. EZETROL [Suspect]
     Active Substance: EZETIMIBE
     Indication: DYSLIPIDAEMIA
     Dosage: 1 DF, QD
     Route: 048
  6. LEXOMIL [Suspect]
     Active Substance: BROMAZEPAM
     Dosage: 1 DF, QD
     Route: 048
  7. BOSULIF [Suspect]
     Active Substance: BOSUTINIB MONOHYDRATE
     Indication: CHRONIC MYELOID LEUKAEMIA
     Dosage: 1 DF, QD (THE EVENING)
     Route: 048
     Dates: start: 201406
  8. BETNESOL [Suspect]
     Active Substance: BETAMETHASONE
     Dosage: 1 DF, QAM
     Route: 048
  9. MICARDIS [Suspect]
     Active Substance: TELMISARTAN
     Indication: HYPERTENSION
     Dosage: 1 DF, QD (THE EVENING)
     Route: 048
  10. PREVISCAN [Suspect]
     Active Substance: FLUINDIONE
     Dosage: 0.75 DF, QD
     Route: 048
  11. INEXIUM (ESOMEPRAZOLE SODIUM) [Suspect]
     Active Substance: ESOMEPRAZOLE
     Dosage: 1 DF, QD
     Route: 048
  12. PREVISCAN [Suspect]
     Active Substance: FLUINDIONE
     Indication: DEEP VEIN THROMBOSIS
     Dosage: 1 DF, QD (THE EVENING)
     Route: 048

REACTIONS (2)
  - Ulcer [Not Recovered/Not Resolved]
  - Livedo reticularis [Not Recovered/Not Resolved]

NARRATIVE: CASE EVENT DATE: 201411
